FAERS Safety Report 19495348 (Version 1)
Quarter: 2021Q3

REPORT INFORMATION
  Report Type: Other
  Country: US (occurrence: US)
  Receive Date: 20210706
  Receipt Date: 20210706
  Transmission Date: 20211014
  Serious: Yes (Other)
  Sender: FDA-Public Use
  Company Number: US-CHEMI SPA-2113474

PATIENT
  Age: 47 Year
  Sex: Male

DRUGS (10)
  1. DECITABINE. [Suspect]
     Active Substance: DECITABINE
     Indication: ACUTE MYELOID LEUKAEMIA
  2. DAUNORUBICIN HYDROCHLORIDE. [Concomitant]
     Active Substance: DAUNORUBICIN HYDROCHLORIDE
  3. FLUDARABINE [Concomitant]
     Active Substance: FLUDARABINE PHOSPHATE
  4. SORAFENIB [Concomitant]
     Active Substance: SORAFENIB
  5. IDARUBICIN HYDROCHLORIDE. [Concomitant]
     Active Substance: IDARUBICIN HYDROCHLORIDE
  6. PONATINIB [Concomitant]
     Active Substance: PONATINIB
  7. CLADRIBINE. [Concomitant]
     Active Substance: CLADRIBINE
  8. GILTERITINIB [Concomitant]
     Active Substance: GILTERITINIB
  9. CYTARABINE. [Concomitant]
     Active Substance: CYTARABINE
  10. VENETOCLAX. [Concomitant]
     Active Substance: VENETOCLAX

REACTIONS (3)
  - Product use in unapproved indication [Unknown]
  - Drug ineffective [Unknown]
  - Off label use [Unknown]
